FAERS Safety Report 8801255 (Version 1)
Quarter: 2012Q4

REPORT INFORMATION
  Report Type: 
  Country: US (occurrence: US)
  Receive Date: 20120921
  Receipt Date: 20120921
  Transmission Date: 20130627
  Serious: Yes (Other)
  Sender: FDA-Public Use
  Company Number: US-ENDO PHARMACEUTICALS INC.-SPLN20120154

PATIENT
  Sex: Female

DRUGS (1)
  1. SUPPRELIN LA [Suspect]
     Indication: PRODUCT USED FOR UNKNOWN INDICATION
     Route: 058
     Dates: start: 20120824

REACTIONS (3)
  - Dyspnoea [Unknown]
  - Hypersensitivity [Not Recovered/Not Resolved]
  - Incision site pain [Recovering/Resolving]
